FAERS Safety Report 10749584 (Version 1)
Quarter: 2015Q1

REPORT INFORMATION
  Report Type: Spontaneous
  Country: US (occurrence: US)
  Receive Date: 20150129
  Receipt Date: 20150129
  Transmission Date: 20150721
  Serious: Yes (Other)
  Sender: FDA-Public Use
  Company Number: US-ELI_LILLY_AND_COMPANY-US201108007022

PATIENT
  Age: 61 Year
  Sex: Female

DRUGS (7)
  1. CYMBALTA [Suspect]
     Active Substance: DULOXETINE HYDROCHLORIDE
     Indication: DEPRESSION
     Dosage: 30 MG, QD
  2. CYMBALTA [Suspect]
     Active Substance: DULOXETINE HYDROCHLORIDE
     Dosage: 30 MG, UNKNOWN
  3. PROTONIX [Concomitant]
     Active Substance: PANTOPRAZOLE SODIUM
  4. CYMBALTA [Suspect]
     Active Substance: DULOXETINE HYDROCHLORIDE
     Indication: FIBROMYALGIA
     Dosage: 60 MG, QD
     Dates: start: 2006
  5. TRAMADOL [Concomitant]
     Active Substance: TRAMADOL
     Indication: PRODUCT USED FOR UNKNOWN INDICATION
  6. CYMBALTA [Suspect]
     Active Substance: DULOXETINE HYDROCHLORIDE
     Dosage: 60 MG, QD
  7. CYMBALTA [Suspect]
     Active Substance: DULOXETINE HYDROCHLORIDE
     Dosage: 15 MG, UNK

REACTIONS (21)
  - Abdominal pain upper [Unknown]
  - Memory impairment [Unknown]
  - Nausea [Unknown]
  - Wrong technique in drug usage process [Recovered/Resolved]
  - Mood swings [Unknown]
  - Hallucination [Unknown]
  - Pruritus [Unknown]
  - Jaundice [Unknown]
  - Headache [Recovering/Resolving]
  - Headache [Unknown]
  - Insomnia [Unknown]
  - Drug withdrawal syndrome [Unknown]
  - Blood pressure fluctuation [Unknown]
  - Feeling abnormal [Unknown]
  - Impaired self-care [Unknown]
  - Mental impairment [Unknown]
  - Confusional state [Not Recovered/Not Resolved]
  - Chills [Recovering/Resolving]
  - Nausea [Recovering/Resolving]
  - Disturbance in attention [Unknown]
  - Rash [Unknown]

NARRATIVE: CASE EVENT DATE: 201501
